FAERS Safety Report 7878706-1 (Version None)
Quarter: 2011Q4

REPORT INFORMATION
  Report Type: 
  Country: None (occurrence: None)
  Receive Date: 20111101
  Receipt Date: 20111021
  Transmission Date: 20120403
  Serious: Yes (Life-Threatening)
  Sender: FDA-Public Use
  Company Number: FR-SANOFI-AVENTIS-2011SA069590

PATIENT
  Age: 69 Year
  Sex: Female
  Weight: 69.5 kg

DRUGS (8)
  1. INSULATARD NPH HUMAN [Concomitant]
     Route: 058
  2. IRBESARTAN [Concomitant]
     Route: 048
     Dates: end: 20111010
  3. KAYEXALATE [Suspect]
     Route: 048
     Dates: end: 20111010
  4. SECTRAL [Concomitant]
     Route: 048
  5. ATORVASTATIN CALCIUM [Concomitant]
     Indication: DYSLIPIDAEMIA
     Route: 048
  6. DEPAKOTE [Concomitant]
     Route: 048
  7. ACARBOSE [Concomitant]
     Dosage: DOSE:2 UNIT(S)
     Route: 048
  8. IMOVANE [Concomitant]
     Dosage: DOSE:1 UNIT(S)
     Route: 048

REACTIONS (3)
  - RHABDOMYOLYSIS [None]
  - HYPOKALAEMIA [None]
  - RENAL FAILURE ACUTE [None]
